FAERS Safety Report 20959998 (Version 1)
Quarter: 2022Q2

REPORT INFORMATION
  Report Type: Spontaneous
  Country: US (occurrence: US)
  Receive Date: 20220615
  Receipt Date: 20220615
  Transmission Date: 20220721
  Serious: Yes (Other)
  Sender: FDA-Public Use
  Company Number: US-009507513-2206USA002358

PATIENT
  Age: 13 Year
  Sex: Male

DRUGS (1)
  1. KEYTRUDA [Suspect]
     Active Substance: PEMBROLIZUMAB
     Indication: Rectal adenocarcinoma
     Dosage: 2 MILLIGRAM/KILOGRAM, ONCE EVERY 3 WEEKS

REACTIONS (2)
  - Immune-mediated lung disease [Unknown]
  - Immune-mediated pancreatitis [Unknown]
